FAERS Safety Report 7720967-3 (Version None)
Quarter: 2011Q3

REPORT INFORMATION
  Report Type: 
  Country: None (occurrence: None)
  Receive Date: 20110825
  Receipt Date: 20110815
  Transmission Date: 20111222
  Serious: Yes (Life-Threatening, Hospitalization)
  Sender: FDA-Public Use
  Company Number: 15920846

PATIENT
  Age: 63 Year
  Sex: Female

DRUGS (13)
  1. VITAMIN D [Concomitant]
  2. CELEXA [Concomitant]
  3. NIZORAL [Concomitant]
  4. TEMAZEPAM [Concomitant]
  5. APIXABAN [Suspect]
     Indication: EMBOLISM
     Dosage: 5 MILLIGRAM 2/1 DAY ORAL
     Route: 048
     Dates: start: 20110427
  6. ENOXAPARIN SODIUM [Suspect]
     Indication: EMBOLISM
  7. TIAZAC AC (DILTIAZEM HCL) [Concomitant]
  8. PLACEBO [Suspect]
     Indication: EMBOLISM
     Dates: start: 20110401
  9. SYNTHROID (ELVOTHYROXINE SODIUM) [Concomitant]
  10. CREON [Concomitant]
  11. ALTACE [Concomitant]
  12. WARFARIN SODIUM [Suspect]
     Indication: EMBOLISM
     Dosage: 1 DOSAGE FORM 1 DAY ORAL
     Route: 048
     Dates: start: 20110427
  13. DEMEROL (PETHIDINE HCL) [Concomitant]

REACTIONS (14)
  - INTERNATIONAL NORMALISED RATIO INCREASED [None]
  - HAEMOGLOBIN DECREASED [None]
  - BLOOD GLUCOSE INCREASED [None]
  - CEREBRAL VENTRICLE DILATATION [None]
  - BLOOD PRESSURE SYSTOLIC INCREASED [None]
  - NAUSEA [None]
  - HAEMATOCRIT DECREASED [None]
  - HEADACHE [None]
  - INTRACRANIAL ANEURYSM [None]
  - CEREBRAL ATROPHY [None]
  - DIZZINESS [None]
  - LOSS OF CONSCIOUSNESS [None]
  - SUBARACHNOID HAEMORRHAGE [None]
  - VOMITING [None]
